FAERS Safety Report 4635400-8 (Version None)
Quarter: 2005Q2

REPORT INFORMATION
  Report Type: 
  Country: None (occurrence: None)
  Receive Date: 20050414
  Receipt Date: 20050401
  Transmission Date: 20051028
  Serious: Yes (Other)
  Sender: FDA-Public Use
  Company Number: 2005043948

PATIENT
  Age: 39 Year
  Sex: Female

DRUGS (5)
  1. MEDROXYPROGESTERONE ACETATE [Suspect]
     Indication: BREAST CANCER
     Dosage: 800 MG (400 MG, BID), ORAL
     Route: 048
     Dates: start: 20010105
  2. SPIRONOLACTONE [Concomitant]
  3. BUFFERIN [Concomitant]
  4. MITOMYCIN (MITOMCYIN) [Concomitant]
  5. TEGAFUR SODIUM (TEGAGUR SODIUM) [Concomitant]

REACTIONS (4)
  - CATARACT SUBCAPSULAR [None]
  - CONJUNCTIVITIS [None]
  - CUSHINGOID [None]
  - VISUAL ACUITY REDUCED [None]
